FAERS Safety Report 25590132 (Version 1)
Quarter: 2025Q3

REPORT INFORMATION
  Report Type: Report from Study
  Country: EU (occurrence: EU)
  Receive Date: 20250722
  Receipt Date: 20250722
  Transmission Date: 20251021
  Serious: Yes (Hospitalization, Disabling, Congenital Anomaly, Other)
  Sender: BAYER HEALTHCARE PHARMACEUTICALS INC.
  Company Number: EU-BAYER-200412555GDS

PATIENT
  Age: 72 Year
  Sex: Female

DRUGS (14)
  1. CIPROFLOXACIN [Interacting]
     Active Substance: CIPROFLOXACIN
     Indication: Escherichia sepsis
     Route: 065
  2. CIPROFLOXACIN [Interacting]
     Active Substance: CIPROFLOXACIN
     Indication: Escherichia infection
     Route: 034
     Dates: start: 2000
  3. CIPROFLOXACIN [Interacting]
     Active Substance: CIPROFLOXACIN
     Indication: Bacterial infection
     Dosage: 750 MG, BID
     Route: 048
     Dates: start: 20010126, end: 20011204
  4. LINEZOLID [Interacting]
     Active Substance: LINEZOLID
     Indication: Staphylococcal infection
     Route: 065
     Dates: start: 2000
  5. LINEZOLID [Interacting]
     Active Substance: LINEZOLID
     Indication: Bacterial infection
     Dosage: 600 MG, 2X/DAY
     Dates: start: 20010126, end: 20011206
  6. RIFAMPIN [Suspect]
     Active Substance: RIFAMPIN
     Indication: Staphylococcal infection
     Route: 065
  7. RIFAMPIN [Suspect]
     Active Substance: RIFAMPIN
     Indication: Staphylococcal infection
     Dates: start: 2000
  8. RIFAMPIN [Suspect]
     Active Substance: RIFAMPIN
     Indication: Staphylococcal infection
     Route: 048
     Dates: start: 20010126, end: 20011204
  9. CITALOPRAM [Concomitant]
     Active Substance: CITALOPRAM
     Indication: Unevaluable event
     Route: 065
  10. CITALOPRAM [Concomitant]
     Active Substance: CITALOPRAM
     Indication: Unevaluable event
  11. LORMETAZEPAM [Concomitant]
     Active Substance: LORMETAZEPAM
     Indication: Unevaluable event
     Route: 065
  12. LORMETAZEPAM [Concomitant]
     Active Substance: LORMETAZEPAM
     Indication: Unevaluable event
  13. INSULIN NOS [Concomitant]
     Active Substance: INSULIN NOS
  14. NIMESULIDE [Concomitant]
     Active Substance: NIMESULIDE
     Indication: Osteoarthritis
     Dosage: UNK
     Route: 048
     Dates: start: 2001, end: 20011206

REACTIONS (5)
  - Optic neuritis [Recovered/Resolved with Sequelae]
  - Drug interaction [Unknown]
  - Vision blurred [Recovered/Resolved with Sequelae]
  - Visual acuity reduced [Recovering/Resolving]
  - Ocular hypertension [Recovered/Resolved]

NARRATIVE: CASE EVENT DATE: 20011115
